FAERS Safety Report 19551519 (Version 5)
Quarter: 2023Q4

REPORT INFORMATION
  Report Type: Other
  Country: GB (occurrence: GB)
  Receive Date: 20210715
  Receipt Date: 20231107
  Transmission Date: 20240109
  Serious: Yes (Other)
  Sender: FDA-Public Use
  Company Number: None

PATIENT
  Age: 59 Year
  Sex: Female

DRUGS (5)
  1. PREDNISOLONE [Suspect]
     Active Substance: PREDNISOLONE
     Indication: Product used for unknown indication
     Dosage: UNK
     Route: 065
  2. ETANERCEPT [Suspect]
     Active Substance: ETANERCEPT
     Indication: Rheumatoid arthritis
     Dosage: 50 MILLIGRAM, ONCE A WEEK
     Route: 058
     Dates: start: 20210325
  3. ETANERCEPT [Suspect]
     Active Substance: ETANERCEPT
     Dosage: 50 MILLIGRAM, ALTERNATE WEEK, FREQUENCY: EVERY 10 TO 12 DAYS (2 WEEK)
     Route: 065
  4. ETANERCEPT [Suspect]
     Active Substance: ETANERCEPT
     Dosage: 50 MILLIGRAM (10 DAYS)
     Route: 058
  5. AMITRIPTYLINE [Concomitant]
     Active Substance: AMITRIPTYLINE
     Indication: Product used for unknown indication
     Dosage: UNK
     Route: 065

REACTIONS (17)
  - Intervertebral disc protrusion [Unknown]
  - Hot flush [None]
  - Ill-defined disorder [Unknown]
  - Asthenia [Recovered/Resolved]
  - Emotional distress [Unknown]
  - Loss of personal independence in daily activities [Unknown]
  - Pain [Unknown]
  - Fatigue [Unknown]
  - Decreased appetite [Unknown]
  - Thyroid disorder [Unknown]
  - Menopausal symptoms [Unknown]
  - Headache [Unknown]
  - Suicidal ideation [None]
  - Anxiety [Unknown]
  - Depression [Recovered/Resolved]
  - Muscular weakness [Unknown]
  - Drug intolerance [Unknown]
